FAERS Safety Report 22079853 (Version 1)
Quarter: 2023Q1

REPORT INFORMATION
  Report Type: Spontaneous
  Country: FR (occurrence: FR)
  Receive Date: 20230309
  Receipt Date: 20230309
  Transmission Date: 20230417
  Serious: Yes (Hospitalization)
  Sender: FDA-Public Use
  Company Number: None

PATIENT
  Age: 71 Year
  Sex: Male
  Weight: 79 kg

DRUGS (6)
  1. LANSOPRAZOLE [Suspect]
     Active Substance: LANSOPRAZOLE
     Indication: Peptic ulcer
     Dosage: 15 MG, QD
     Route: 048
     Dates: start: 20221115
  2. TAFINLAR [Suspect]
     Active Substance: DABRAFENIB MESYLATE
     Indication: Lung adenocarcinoma
     Dosage: 4 DOSAGE FORM, QD
     Route: 048
     Dates: start: 20230127, end: 20230217
  3. MEKINIST [Suspect]
     Active Substance: TRAMETINIB DIMETHYL SULFOXIDE
     Indication: Lung adenocarcinoma
     Dosage: 1 DOSAGE FORM, QD
     Route: 048
     Dates: start: 20230127, end: 20230217
  4. DURVALUMAB [Suspect]
     Active Substance: DURVALUMAB
     Indication: Lung adenocarcinoma
     Dosage: 1500 MG, QMO
     Route: 042
     Dates: start: 20221012, end: 20230106
  5. XGEVA [Suspect]
     Active Substance: DENOSUMAB
     Indication: Metastases to bone
     Dosage: 1 DOSAGE FORM, QMO
     Route: 058
  6. INNOHEP [Suspect]
     Active Substance: TINZAPARIN SODIUM
     Indication: Pulmonary embolism
     Dosage: 14000 IU, QD
     Route: 058
     Dates: start: 20221114

REACTIONS (2)
  - Colitis [Not Recovered/Not Resolved]
  - Enteritis [Not Recovered/Not Resolved]

NARRATIVE: CASE EVENT DATE: 20230202
